FAERS Safety Report 15152739 (Version 1)
Quarter: 2018Q3

REPORT INFORMATION
  Report Type: Other
  Country: RU (occurrence: RU)
  Receive Date: 20180717
  Receipt Date: 20180717
  Transmission Date: 20181010
  Serious: Yes (Hospitalization)
  Sender: FDA-Public Use
  Company Number: RU-LUPIN PHARMACEUTICALS INC.-2018-03707

PATIENT
  Age: 55 Year
  Sex: Male
  Weight: 53 kg

DRUGS (7)
  1. ISONIAZID. [Concomitant]
     Active Substance: ISONIAZID
     Indication: PULMONARY TUBERCULOSIS
     Dosage: UNK
     Route: 048
     Dates: start: 20120312
  2. PYRAZINAMIDE. [Suspect]
     Active Substance: PYRAZINAMIDE
     Indication: PULMONARY TUBERCULOSIS
     Dosage: UNK
     Route: 048
     Dates: start: 20120312
  3. ESSENTIALE                         /00022201/ [Concomitant]
     Indication: PANCREATITIS
     Dosage: UNK
     Route: 042
     Dates: start: 20120404, end: 20120409
  4. COMBUTOL [Concomitant]
     Active Substance: ETHAMBUTOL HYDROCHLORIDE
     Indication: PULMONARY TUBERCULOSIS
     Dosage: UNK
     Route: 048
     Dates: start: 20120312
  5. OMEPRAZOLE. [Concomitant]
     Active Substance: OMEPRAZOLE
     Indication: GASTRODUODENITIS
     Dosage: UNK
     Route: 048
     Dates: start: 20120312
  6. RIFABUTIN. [Suspect]
     Active Substance: RIFABUTIN
     Dosage: 0.3 G, QD
     Route: 048
     Dates: start: 20120312, end: 20120326
  7. CONTRYKAL [Concomitant]
     Indication: PANCREATITIS
     Dosage: UNK
     Route: 042
     Dates: start: 20120404

REACTIONS (2)
  - Pruritus [Recovered/Resolved with Sequelae]
  - Rash [Recovered/Resolved with Sequelae]

NARRATIVE: CASE EVENT DATE: 20120326
